FAERS Safety Report 4485151-8 (Version None)
Quarter: 2004Q4

REPORT INFORMATION
  Report Type: 
  Country: None (occurrence: None)
  Receive Date: 20041026
  Receipt Date: 20031226
  Transmission Date: 20050328
  Serious: No
  Sender: FDA-Public Use
  Company Number: US-BRISTOL-MYERS SQUIBB COMPANY-12465944

PATIENT
  Sex: Female

DRUGS (3)
  1. GLUCOPHAGE XR [Suspect]
     Indication: DIABETES MELLITUS NON-INSULIN-DEPENDENT
     Dosage: DURATION OF THERAPY:  ^OVER A YEAR^
     Route: 048
  2. ZOCOR [Suspect]
     Dates: start: 20031215
  3. GLYBURIDE [Concomitant]

REACTIONS (1)
  - SWELLING FACE [None]
